FAERS Safety Report 4365390-7 (Version None)
Quarter: 2004Q2

REPORT INFORMATION
  Report Type: 
  Country: None (occurrence: None)
  Receive Date: 20040525
  Receipt Date: 20040514
  Transmission Date: 20050107
  Serious: Yes (Hospitalization)
  Sender: FDA-Public Use
  Company Number: PERI00204001352

PATIENT
  Age: 69 Year
  Sex: Female
  Weight: 65 kg

DRUGS (7)
  1. COVERSYL         (PERINDOPRIL) [Suspect]
     Indication: BREAST NEOPLASM
     Dosage: 4 MG QD PO
     Route: 048
     Dates: start: 20020101
  2. ARIMIDEX [Suspect]
     Indication: ILL-DEFINED DISORDER
     Dosage: 1 MG QD PO
     Route: 048
     Dates: start: 20030414
  3. TAMOXIFEN CITRATE [Suspect]
     Indication: BREAST NEOPLASM
     Dosage: DAILY, PO
     Route: 048
     Dates: end: 20030414
  4. SERETIDE (SERETIDE) [Concomitant]
  5. STILNOX (ZOLPIDEM) [Concomitant]
  6. LEXOMIL (BROMAZEPAM) [Concomitant]
  7. PRAVASTATIN SODIUM [Concomitant]

REACTIONS (1)
  - MYOCARDIAL INFARCTION [None]
